FAERS Safety Report 4750404-2 (Version None)
Quarter: 2005Q3

REPORT INFORMATION
  Report Type: 
  Country: None (occurrence: None)
  Receive Date: 20050818
  Receipt Date: 20050804
  Transmission Date: 20060218
  Serious: Yes (Hospitalization)
  Sender: FDA-Public Use
  Company Number: 002#4#2005-00257

PATIENT
  Age: 51 Year
  Sex: Female

DRUGS (11)
  1. CHLORPHENIRAMINE MALEATE AND PHENYLPROPANOLAMINE HCL [Suspect]
     Indication: HYPERSENSITIVITY
  2. CHLORPHENIRAMINE MALEATE AND PHENYLPROPANOLAMINE HCL [Suspect]
     Indication: NASOPHARYNGITIS
  3. ALLEREST-12-HOUR-CAPLETS [Suspect]
     Indication: HYPERSENSITIVITY
  4. ALLEREST-12-HOUR-CAPLETS [Suspect]
     Indication: NASOPHARYNGITIS
  5. CORICIDIN D SRT [Suspect]
     Indication: HYPERSENSITIVITY
  6. CORICIDIN D SRT [Suspect]
     Indication: NASOPHARYNGITIS
  7. ROBITUSSIN-CF [Suspect]
     Indication: HYPERSENSITIVITY
  8. ROBITUSSIN-CF [Suspect]
     Indication: NASOPHARYNGITIS
  9. PREMARIN [Concomitant]
  10. PROVERA [Concomitant]
  11. TYLENOL W/ CODEINE [Concomitant]

REACTIONS (11)
  - CEREBRAL INFARCTION [None]
  - DEPRESSED LEVEL OF CONSCIOUSNESS [None]
  - FEELING ABNORMAL [None]
  - HEADACHE [None]
  - HEART RATE INCREASED [None]
  - MEMORY IMPAIRMENT [None]
  - NAUSEA [None]
  - PALLOR [None]
  - POSTICTAL STATE [None]
  - TONIC CONVULSION [None]
  - TRANSVERSE SINUS THROMBOSIS [None]
